FAERS Safety Report 8887521 (Version 1)
Quarter: 2012Q4

REPORT INFORMATION
  Report Type: Spontaneous
  Country: US (occurrence: None)
  Receive Date: 20121101
  Receipt Date: 20121101
  Transmission Date: 20130627
  Serious: Yes (Hospitalization)
  Sender: FDA-Public Use
  Company Number: None

PATIENT
  Age: 83 Year
  Sex: Female
  Weight: 50.2 kg

DRUGS (10)
  1. PRADAXA [Suspect]
     Indication: ATRIAL FIBRILLATION
     Route: 048
  2. ASA [Suspect]
     Indication: CORONARY ARTERY DISEASE
     Route: 048
  3. AMITRIPYLINE [Concomitant]
  4. FUROSEMIDE [Concomitant]
  5. LISINOPRIL [Concomitant]
  6. TYLENOL [Concomitant]
  7. LEVOTHYROXINE [Concomitant]
  8. POTASSIUM GLUCONATE [Concomitant]
  9. GAS-X [Concomitant]
  10. SYSTANE [Concomitant]

REACTIONS (6)
  - Anaemia [None]
  - Failure to thrive [None]
  - Gastrointestinal haemorrhage [None]
  - Dyspnoea [None]
  - Hyperhidrosis [None]
  - Gastrointestinal motility disorder [None]
